FAERS Safety Report 14584847 (Version 1)
Quarter: 2018Q1

REPORT INFORMATION
  Report Type: Spontaneous
  Country: US (occurrence: US)
  Receive Date: 20180301
  Receipt Date: 20180301
  Transmission Date: 20180509
  Serious: No
  Sender: FDA-Public Use
  Company Number: US-INVENTIA-000170

PATIENT
  Sex: Female

DRUGS (1)
  1. METFORMIN [Suspect]
     Active Substance: METFORMIN HYDROCHLORIDE
     Indication: DIABETES MELLITUS
     Dosage: TWO TABLETS IN THE MORNING AND TAKE 2 TABLETS AT NIGHT
     Dates: end: 201705

REACTIONS (2)
  - Drug ineffective [Unknown]
  - Product substitution issue [None]
